FAERS Safety Report 4476601-1 (Version None)
Quarter: 2004Q4

REPORT INFORMATION
  Report Type: 
  Country: None (occurrence: None)
  Receive Date: 20041013
  Receipt Date: 20040928
  Transmission Date: 20050328
  Serious: Yes (Hospitalization)
  Sender: FDA-Public Use
  Company Number: USA030126063

PATIENT
  Age: 88 Year
  Sex: Female
  Weight: 66 kg

DRUGS (10)
  1. FORTEO [Suspect]
     Indication: OSTEOPOROSIS
     Dosage: 20 UG DAY
     Dates: start: 20030109
  2. FORTEO [Suspect]
     Indication: SPINAL FRACTURE
     Dosage: 20 UG DAY
     Dates: start: 20030109
  3. FOSAMAX [Concomitant]
  4. ACTONEL [Concomitant]
  5. DILANTIN [Concomitant]
  6. ZESTRIL [Concomitant]
  7. ASPIRIN [Concomitant]
  8. NORVASC [Concomitant]
  9. LISINOPRIL [Concomitant]
  10. PRAVACHOL [Concomitant]

REACTIONS (10)
  - ACCIDENTAL NEEDLE STICK [None]
  - ANGINA PECTORIS [None]
  - ASTHENIA [None]
  - ATRIOVENTRICULAR BLOCK FIRST DEGREE [None]
  - BLOOD PRESSURE DIASTOLIC DECREASED [None]
  - BRADYCARDIA [None]
  - BUNDLE BRANCH BLOCK RIGHT [None]
  - HYPONATRAEMIA [None]
  - MEDICAL DEVICE COMPLICATION [None]
  - SICK SINUS SYNDROME [None]
